FAERS Safety Report 14919450 (Version 2)
Quarter: 2018Q2

REPORT INFORMATION
  Report Type: Spontaneous
  Country: JP (occurrence: JP)
  Receive Date: 20180521
  Receipt Date: 20180621
  Transmission Date: 20180711
  Serious: Yes (Hospitalization)
  Sender: FDA-Public Use
  Company Number: PHJP2018JP010952

PATIENT
  Sex: Female

DRUGS (3)
  1. COMTAN [Suspect]
     Active Substance: ENTACAPONE
     Dosage: 400 MG, UNK
     Route: 065
  2. CARBIDOPA + L-DOPA [Concomitant]
     Active Substance: CARBIDOPA\LEVODOPA
     Indication: PARKINSON^S DISEASE
     Dosage: 200 MG, UNK
     Route: 065
  3. COMTAN [Suspect]
     Active Substance: ENTACAPONE
     Indication: PARKINSON^S DISEASE
     Dosage: UNK
     Route: 065

REACTIONS (8)
  - Speech disorder [Unknown]
  - Hallucination [Unknown]
  - Muscle rigidity [Unknown]
  - Delusion [Unknown]
  - Dyskinesia [Unknown]
  - Psychotic disorder [Unknown]
  - Immobile [Unknown]
  - Dysphagia [Not Recovered/Not Resolved]
